FAERS Safety Report 8997122 (Version 1)
Quarter: 2013Q1

REPORT INFORMATION
  Report Type: Spontaneous
  Country: US (occurrence: US)
  Receive Date: 20130104
  Receipt Date: 20130104
  Transmission Date: 20140127
  Serious: Yes (Death)
  Sender: FDA-Public Use
  Company Number: PHEH2012US025671

PATIENT
  Sex: Female

DRUGS (10)
  1. AFINITOR [Suspect]
     Indication: BREAST CANCER
     Dosage: 10 MG, UNK
  2. PROMACTA [Suspect]
     Dosage: 25 MG, DAILY
     Route: 048
  3. SYNTHROID [Concomitant]
     Dosage: 88 UG, UNK
  4. FOLIC ACID [Concomitant]
  5. FISH OIL [Concomitant]
  6. WOMEN^S MULTI [Concomitant]
  7. CALCIUM [Concomitant]
  8. ASPIRIN LOW [Concomitant]
  9. ZYRTEC ALLERGY [Concomitant]
  10. SINGULAIR [Concomitant]

REACTIONS (1)
  - Death [Fatal]
